FAERS Safety Report 9406890 (Version 2)
Quarter: 2013Q3

REPORT INFORMATION
  Report Type: Report from Study
  Country: US (occurrence: US)
  Receive Date: 20130718
  Receipt Date: 20130930
  Transmission Date: 20140515
  Serious: Yes (Other)
  Sender: FDA-Public Use
  Company Number: PHEH2013US015070

PATIENT
  Sex: Male

DRUGS (4)
  1. GLEEVEC [Suspect]
     Indication: SOFT TISSUE CANCER
     Dosage: 1 DF, DAILY
     Route: 048
     Dates: start: 201208
  2. GLEEVEC [Suspect]
     Dosage: 1 DF, DAILY
     Route: 048
  3. ACEBUTOLOL [Concomitant]
     Dosage: UNK UKN, UNK
  4. ALEVE [Concomitant]
     Dosage: UNK UKN, UNK

REACTIONS (4)
  - Gastrointestinal stromal tumour [Unknown]
  - Diarrhoea [Unknown]
  - Constipation [Unknown]
  - Nausea [Unknown]
